FAERS Safety Report 9547715 (Version 2)
Quarter: 2014Q1

REPORT INFORMATION
  Report Type: Report from Study
  Country: VE (occurrence: VE)
  Receive Date: 20130924
  Receipt Date: 20140328
  Transmission Date: 20141002
  Serious: Yes (Hospitalization)
  Sender: FDA-Public Use
  Company Number: VE-ROCHE-1279663

PATIENT
  Age: 53 Year
  Sex: Female

DRUGS (6)
  1. XOLAIR [Suspect]
     Indication: ASTHMA
     Route: 058
     Dates: start: 201305, end: 201306
  2. SINGULAIR [Concomitant]
     Indication: ASTHMA
  3. SINGULAIR [Concomitant]
     Indication: FATIGUE
  4. SINGULAIR [Concomitant]
     Indication: HYPERSENSITIVITY
  5. ALLEGRA [Concomitant]
     Indication: HYPERSENSITIVITY
  6. ADALAT [Concomitant]
     Indication: BLOOD PRESSURE

REACTIONS (3)
  - Tension [Recovering/Resolving]
  - Hypertension [Recovering/Resolving]
  - Stress [Recovering/Resolving]
